FAERS Safety Report 5950584-7 (Version None)
Quarter: 2008Q4

REPORT INFORMATION
  Report Type: 
  Country: None (occurrence: None)
  Receive Date: 20081022
  Receipt Date: 20080808
  Transmission Date: 20090506
  Serious: No
  Sender: FDA-Public Use
  Company Number: SPV1-2008-01693

PATIENT
  Sex: Male

DRUGS (1)
  1. VYVANSE [Suspect]
     Dosage: 1/XDAY:QD, ORAL
     Route: 048

REACTIONS (3)
  - DEPRESSED MOOD [None]
  - MALAISE [None]
  - TREMOR [None]
